FAERS Safety Report 5992384-8 (Version None)
Quarter: 2008Q4

REPORT INFORMATION
  Report Type: 
  Country: None (occurrence: None)
  Receive Date: 20081202
  Receipt Date: 20071211
  Transmission Date: 20090506
  Serious: Yes (Other)
  Sender: FDA-Public Use
  Company Number: WAES 0705USA02675

PATIENT
  Age: 63 Year
  Sex: Female
  Weight: 68.0396 kg

DRUGS (15)
  1. FOSAMAX [Suspect]
     Indication: OSTEOPOROSIS
     Dosage: 70 MG/WKY/PO
     Route: 048
     Dates: start: 20050501, end: 20060801
  2. ARMOUR THYROID TABLETS [Concomitant]
  3. CRESTOR [Concomitant]
  4. CVS COENZYME Q10 [Concomitant]
  5. DILANTIN [Concomitant]
  6. MIRAPEX [Concomitant]
  7. PLAVIX [Concomitant]
  8. ZETIA [Concomitant]
  9. ASPIRIN [Concomitant]
  10. INDAPAMIDE [Concomitant]
  11. OMEPRAZOLE [Concomitant]
  12. POTASSIUM CHLORIDE [Concomitant]
  13. RANITIDINE [Concomitant]
  14. VITAMIN D (UNSPECIFIED) [Concomitant]
  15. VITAMINS (UNSPECIFIED) [Concomitant]

REACTIONS (1)
  - OSTEONECROSIS [None]
